FAERS Safety Report 9016460 (Version 6)
Quarter: 2015Q1

REPORT INFORMATION
  Report Type: Spontaneous
  Country: US (occurrence: US)
  Receive Date: 20130116
  Receipt Date: 20150204
  Transmission Date: 20150721
  Serious: Yes (Hospitalization, Other)
  Sender: FDA-Public Use
  Company Number: US-009507513-1301USA006586

PATIENT
  Sex: Female
  Weight: 64.4 kg

DRUGS (5)
  1. ALENDRONATE SODIUM. [Suspect]
     Active Substance: ALENDRONATE SODIUM
     Dosage: 70 MG, UNK
     Route: 048
     Dates: start: 20100125, end: 20100601
  2. ALENDRONATE SODIUM. [Suspect]
     Active Substance: ALENDRONATE SODIUM
     Indication: OSTEOPENIA
     Dosage: 70 MG, UNK
     Route: 048
     Dates: start: 200803
  3. FOSAMAX [Suspect]
     Active Substance: ALENDRONATE SODIUM
     Indication: OSTEOPENIA
     Dosage: 70 MG, QW
     Route: 048
     Dates: start: 2001, end: 201001
  4. VITAMINS (UNSPECIFIED) [Concomitant]
     Active Substance: VITAMINS
     Dosage: UNK UNK, QD
     Dates: start: 1980
  5. CALCIUM (UNSPECIFIED) (+) VITAMIN D (UNSPECIFIED) [Concomitant]
     Active Substance: CALCIUM CARBONATE\VITAMIN D
     Dosage: UNK UNK, QD
     Dates: start: 1980

REACTIONS (26)
  - Femur fracture [Unknown]
  - Low turnover osteopathy [Unknown]
  - Fall [Unknown]
  - Depression [Unknown]
  - Anaemia [Unknown]
  - Osteoarthritis [Unknown]
  - Spinal column stenosis [Unknown]
  - Macular degeneration [Unknown]
  - Tonsillectomy [Unknown]
  - Haematocrit abnormal [Recovered/Resolved]
  - Hypertension [Unknown]
  - Rheumatoid arthritis [Unknown]
  - Anxiety [Unknown]
  - Intervertebral disc protrusion [Unknown]
  - Hand fracture [Unknown]
  - Osteoporosis [Unknown]
  - Joint arthroplasty [Unknown]
  - Type 2 diabetes mellitus [Unknown]
  - Intervertebral disc disorder [Unknown]
  - Thyroiditis [Unknown]
  - Attention deficit/hyperactivity disorder [Unknown]
  - Intramedullary rod insertion [Unknown]
  - Vitamin D deficiency [Unknown]
  - Hypercholesterolaemia [Unknown]
  - Arthrodesis [Unknown]
  - Mobility decreased [Unknown]

NARRATIVE: CASE EVENT DATE: 2004
